FAERS Safety Report 8646101 (Version 2)
Quarter: 2012Q4

REPORT INFORMATION
  Report Type: 
  Country: US (occurrence: US)
  Receive Date: 20120702
  Receipt Date: 20121008
  Transmission Date: 20130627
  Serious: No
  Sender: FDA-Public Use
  Company Number: US-ASTRAZENECA-2012SE18768

PATIENT
  Age: 41 Year
  Sex: Female

DRUGS (1)
  1. SEROQUEL XR [Suspect]
     Route: 048

REACTIONS (11)
  - Crying [Unknown]
  - Agitation [Unknown]
  - Alopecia [Unknown]
  - Malaise [Unknown]
  - Night sweats [Unknown]
  - Bipolar disorder [Unknown]
  - Drug withdrawal syndrome [Unknown]
  - Palpitations [Unknown]
  - Intentional drug misuse [Unknown]
  - Circumstance or information capable of leading to medication error [Unknown]
  - Drug dose omission [Unknown]
